FAERS Safety Report 16809670 (Version 1)
Quarter: 2019Q4

REPORT INFORMATION
  Report Type: Spontaneous
  Country: US (occurrence: US)
  Receive Date: 20190915
  Receipt Date: 20190915
  Transmission Date: 20200122
  Serious: Yes (Disabling, Other)
  Sender: FDA-Public Use
  Company Number: None

PATIENT
  Age: 78 Year
  Sex: Female
  Weight: 87.54 kg

DRUGS (1)
  1. REPATHA [Suspect]
     Active Substance: EVOLOCUMAB
     Indication: BLOOD CHOLESTEROL INCREASED
     Dates: start: 20190401, end: 20190620

REACTIONS (9)
  - Back pain [None]
  - Headache [None]
  - Urticaria [None]
  - Contusion [None]
  - Device malfunction [None]
  - Respiratory disorder [None]
  - Musculoskeletal stiffness [None]
  - Anal incontinence [None]
  - Injection site pain [None]

NARRATIVE: CASE EVENT DATE: 20190422
